FAERS Safety Report 14352066 (Version 1)
Quarter: 2018Q1

REPORT INFORMATION
  Report Type: Spontaneous
  Country: US (occurrence: US)
  Receive Date: 20180104
  Receipt Date: 20180104
  Transmission Date: 20180509
  Serious: No
  Sender: FDA-Public Use
  Company Number: US-TAIHO ONCOLOGY INC-EU-2017-01556

PATIENT
  Age: 90 Year
  Sex: Male

DRUGS (1)
  1. LONSURF [Suspect]
     Active Substance: TIPIRACIL HYDROCHLORIDE\TRIFLURIDINE
     Indication: COLON CANCER
     Route: 048
     Dates: start: 20170803

REACTIONS (4)
  - Cognitive disorder [Unknown]
  - Diarrhoea [Unknown]
  - Dementia [Unknown]
  - Constipation [Unknown]

NARRATIVE: CASE EVENT DATE: 20170810
